FAERS Safety Report 5253988-3 (Version None)
Quarter: 2007Q1

REPORT INFORMATION
  Report Type: 
  Country: None (occurrence: None)
  Receive Date: 20070302
  Receipt Date: 20070226
  Transmission Date: 20070707
  Serious: Yes (Other)
  Sender: FDA-Public Use
  Company Number: US-JNJFOC-20070206265

PATIENT
  Sex: Male
  Weight: 124.74 kg

DRUGS (5)
  1. PEPCID AC [Suspect]
  2. PEPCID AC [Suspect]
     Indication: DYSPEPSIA
     Dosage: 20-40MG PER DAY
  3. TRIAMTERENE [Concomitant]
     Indication: HYPERTENSION
  4. LISINOPRIL [Concomitant]
     Indication: HYPERTENSION
  5. NISOLDEPINE [Concomitant]
     Indication: HYPERTENSION

REACTIONS (1)
  - HAEMATOCHEZIA [None]
